FAERS Safety Report 20566106 (Version 1)
Quarter: 2022Q1

REPORT INFORMATION
  Report Type: Spontaneous
  Country: US (occurrence: None)
  Receive Date: 20220307
  Receipt Date: 20220307
  Transmission Date: 20220423
  Serious: Yes (Other)
  Sender: FDA-Public Use
  Company Number: None

PATIENT
  Age: 47 Year
  Sex: Female
  Weight: 112.95 kg

DRUGS (7)
  1. KANJINTI [Suspect]
     Active Substance: TRASTUZUMAB-ANNS
     Indication: Breast cancer
     Dosage: OTHER FREQUENCY : EVERY 21 DAYS;?
     Route: 041
  2. PERTUZUMAB [Concomitant]
     Active Substance: PERTUZUMAB
     Dates: start: 20220304, end: 20220304
  3. CARBOPLATIN [Concomitant]
     Active Substance: CARBOPLATIN
     Dates: start: 20220304, end: 20220304
  4. DOCETAXEL [Concomitant]
     Active Substance: DOCETAXEL
     Dates: start: 20220304, end: 20220304
  5. palonsetron [Concomitant]
     Dates: start: 20220304, end: 20220304
  6. DEXAMETHASONE [Concomitant]
     Active Substance: DEXAMETHASONE
     Dates: start: 20220304, end: 20220304
  7. APREPITANT [Concomitant]
     Active Substance: APREPITANT
     Dates: start: 20220304, end: 20220304

REACTIONS (4)
  - Chills [None]
  - Tremor [None]
  - Infusion related reaction [None]
  - Blood pressure increased [None]

NARRATIVE: CASE EVENT DATE: 20220304
